FAERS Safety Report 8767260 (Version 2)
Quarter: 2012Q4

REPORT INFORMATION
  Report Type: 
  Country: FR (occurrence: FR)
  Receive Date: 20120904
  Receipt Date: 20121016
  Transmission Date: 20130627
  Serious: Yes (Other)
  Sender: FDA-Public Use
  Company Number: FR-GLAXOSMITHKLINE-B0824363A

PATIENT
  Age: 50 Year
  Sex: Female

DRUGS (8)
  1. AZANTAC [Suspect]
     Indication: CHEMOTHERAPY
     Dosage: 50MG Single dose
     Route: 042
     Dates: start: 20120717, end: 20120717
  2. DOCETAXEL [Suspect]
     Indication: CHEMOTHERAPY
     Dosage: 160MG Cyclic
     Route: 042
     Dates: start: 20120717, end: 20120717
  3. SOLUPRED [Suspect]
     Indication: CHEMOTHERAPY
     Dosage: 60MG Per day
     Route: 048
     Dates: start: 20120716, end: 20120718
  4. EMEND [Suspect]
     Indication: CHEMOTHERAPY
     Route: 048
     Dates: start: 20120717, end: 20120719
  5. POLARAMINE [Suspect]
     Indication: CHEMOTHERAPY
     Dosage: 5MG Single dose
     Route: 042
     Dates: start: 20120717, end: 20120717
  6. FARMORUBICINE [Concomitant]
     Indication: CHEMOTHERAPY
     Dates: start: 20120626, end: 20120626
  7. 5FU [Concomitant]
     Indication: CHEMOTHERAPY
     Dates: start: 20120626, end: 20120626
  8. ENDOXAN [Concomitant]
     Indication: CHEMOTHERAPY
     Dates: start: 20120626, end: 20120626

REACTIONS (6)
  - Palmar-plantar erythrodysaesthesia syndrome [Recovered/Resolved]
  - Oral disorder [Recovered/Resolved]
  - Mucosal inflammation [Recovered/Resolved]
  - Thermal burn [Recovered/Resolved]
  - Skin exfoliation [Recovered/Resolved]
  - Pain [Recovered/Resolved]
